FAERS Safety Report 13630786 (Version 1)
Quarter: 2017Q2

REPORT INFORMATION
  Report Type: Spontaneous
  Country: US (occurrence: US)
  Receive Date: 20170531
  Receipt Date: 20170531
  Transmission Date: 20170830
  Serious: No
  Sender: FDA-Public Use
  Company Number: US-ASTELLAS-1329136

PATIENT
  Sex: Female

DRUGS (2)
  1. METAMUCIL [Concomitant]
     Active Substance: PLANTAGO SEED
  2. TARCEVA [Suspect]
     Active Substance: ERLOTINIB HYDROCHLORIDE
     Indication: PANCREATIC CARCINOMA
     Route: 048
     Dates: start: 20131126

REACTIONS (2)
  - Acne [Not Recovered/Not Resolved]
  - Diarrhoea [Not Recovered/Not Resolved]
